FAERS Safety Report 4642482-6 (Version None)
Quarter: 2005Q2

REPORT INFORMATION
  Report Type: 
  Country: None (occurrence: None)
  Receive Date: 20050422
  Receipt Date: 20050307
  Transmission Date: 20051028
  Serious: Yes (Hospitalization)
  Sender: FDA-Public Use
  Company Number: IT-ROCHE-402562

PATIENT
  Age: 6 Year
  Sex: Male

DRUGS (2)
  1. ROCEPHIN [Suspect]
     Indication: BRONCHITIS
     Dosage: FORMULATION REPORTED AS VIAL
     Route: 030
     Dates: start: 20050225, end: 20050225
  2. MORNIFLUMATE [Concomitant]
     Indication: PAIN
     Dosage: STRENGTH AND FORMULATION REPORTED AS 285 MG SUPP.
     Route: 054
     Dates: start: 20050225, end: 20050225

REACTIONS (4)
  - FACE OEDEMA [None]
  - OEDEMA [None]
  - PRURITUS [None]
  - TREMOR [None]
